FAERS Safety Report 12529999 (Version 1)
Quarter: 2016Q3

REPORT INFORMATION
  Report Type: Spontaneous
  Country: DE (occurrence: DE)
  Receive Date: 20160706
  Receipt Date: 20160706
  Transmission Date: 20161109
  Serious: Yes (Other)
  Sender: FDA-Public Use
  Company Number: DE-CIPLA LTD.-2011DE00221

PATIENT

DRUGS (7)
  1. PEMETREXED [Suspect]
     Active Substance: PEMETREXED
     Indication: OVARIAN CANCER RECURRENT
     Dosage: 500 MG/M2, OVER 10 MIN, ON DAY 1
     Route: 042
  2. CARBOPLATIN. [Suspect]
     Active Substance: CARBOPLATIN
     Indication: MALIGNANT PERITONEAL NEOPLASM
  3. PEMETREXED [Suspect]
     Active Substance: PEMETREXED
     Indication: MALIGNANT PERITONEAL NEOPLASM
  4. DEXAMETHASONE. [Concomitant]
     Active Substance: DEXAMETHASONE
     Indication: ALLERGY PROPHYLAXIS
     Dosage: 4 MG, BID, FOR THREE 3 DAYS STARTING 1 DAY BEFORE PEMETREXED
     Route: 048
  5. CARBOPLATIN. [Suspect]
     Active Substance: CARBOPLATIN
     Indication: OVARIAN CANCER RECURRENT
     Dosage: AUC 6, AS 30 MIN INFUSION ON DAY 1 OF A 21 DAY CYCLE
     Route: 042
  6. FOLIC ACID. [Concomitant]
     Active Substance: FOLIC ACID
     Dosage: UNK (350-1000 MICRO GRAMS)
     Route: 048
  7. VITAMIN B12 [Concomitant]
     Active Substance: CYANOCOBALAMIN
     Dosage: 1000 MICROGRAMS, EVERY 9 WEEKS
     Route: 030

REACTIONS (1)
  - Dyspnoea [Unknown]
